FAERS Safety Report 19213472 (Version 1)
Quarter: 2021Q2

REPORT INFORMATION
  Report Type: Spontaneous
  Country: IE (occurrence: IE)
  Receive Date: 20210504
  Receipt Date: 20210504
  Transmission Date: 20210717
  Serious: Yes (Death, Life-Threatening, Hospitalization, Other)
  Sender: FDA-Public Use
  Company Number: IE-ADVANZ PHARMA-202104003092

PATIENT

DRUGS (6)
  1. LACTULOSE. [Concomitant]
     Active Substance: LACTULOSE
     Indication: HEPATIC ENCEPHALOPATHY PROPHYLAXIS
  2. PREDNISOLONE. [Suspect]
     Active Substance: PREDNISOLONE
     Dosage: FROM DAY 36 ON DAY 45
  3. PREDNISOLONE. [Suspect]
     Active Substance: PREDNISOLONE
     Indication: CHOLESTATIC LIVER INJURY
     Dosage: 10 MG
  4. PREDNISOLONE. [Suspect]
     Active Substance: PREDNISOLONE
     Dosage: FROM DAY 30 TO DAY 33
  5. PREDNISOLONE. [Suspect]
     Active Substance: PREDNISOLONE
     Indication: HEPATOTOXICITY
     Dosage: FROM DAY 52
  6. PREDNISOLONE. [Suspect]
     Active Substance: PREDNISOLONE
     Indication: HEPATIC STEATOSIS
     Dosage: FROM DAY 45 TO 52

REACTIONS (2)
  - Urinary tract infection [Fatal]
  - Urosepsis [Fatal]
